FAERS Safety Report 25427771 (Version 4)
Quarter: 2025Q3

REPORT INFORMATION
  Report Type: Spontaneous
  Country: EU (occurrence: EU)
  Receive Date: 20250612
  Receipt Date: 20250803
  Transmission Date: 20251021
  Serious: Yes (Other)
  Sender: ALEXION PHARMACEUTICALS
  Company Number: EU-AstraZeneca-CH-00888034A

PATIENT
  Age: 26 Year
  Sex: Female

DRUGS (4)
  1. ULTOMIRIS [Suspect]
     Active Substance: RAVULIZUMAB-CWVZ
     Route: 065
  2. ULTOMIRIS [Suspect]
     Active Substance: RAVULIZUMAB-CWVZ
     Dosage: 3000 MILLIGRAM, Q8W
     Route: 065
  3. VOYDEYA [Suspect]
     Active Substance: DANICOPAN
     Route: 065
  4. Ospen [Concomitant]
     Dosage: 500 MILLIGRAM, BID
     Route: 065

REACTIONS (11)
  - Extravascular haemolysis [Unknown]
  - Immunodeficiency [Unknown]
  - Haptoglobin decreased [Unknown]
  - Jaundice [Not Recovered/Not Resolved]
  - Herpes virus infection [Unknown]
  - Mean cell volume increased [Unknown]
  - Blood folate increased [Unknown]
  - Haemoglobin decreased [Unknown]
  - Reticulocyte count increased [Unknown]
  - Red cell distribution width increased [Unknown]
  - Blood bilirubin increased [Unknown]

NARRATIVE: CASE EVENT DATE: 20250604
